FAERS Safety Report 8444192-6 (Version None)
Quarter: 2012Q2

REPORT INFORMATION
  Report Type: 
  Country: None (occurrence: None)
  Receive Date: 20120618
  Receipt Date: 20120607
  Transmission Date: 20120825
  Serious: Yes (Other)
  Sender: FDA-Public Use
  Company Number: JP-ASTRAZENECA-2012SE39129

PATIENT
  Age: 60 Year
  Sex: Female

DRUGS (9)
  1. CRESTOR [Suspect]
     Route: 048
     Dates: start: 20110627, end: 20111024
  2. ADVAIR DISKUS 100/50 [Concomitant]
     Dosage: DOSE UNKNOWN
     Route: 065
  3. MEFENAMIC ACID [Concomitant]
     Dosage: DOSE UNKNOWN
     Route: 065
  4. LENDEM [Concomitant]
     Dosage: DOSE UNKNOWN
     Route: 065
  5. ALBUTEROL SULFATE [Concomitant]
     Dosage: DOSE UNKNOWN
     Route: 065
  6. SOLANTAL [Concomitant]
     Dosage: DOSE UNKNOWN
     Route: 065
  7. LIDOMEX [Concomitant]
     Dosage: DOSE UNKNOWN
     Route: 065
  8. CRESTOR [Suspect]
     Indication: HYPERCHOLESTEROLAEMIA
     Route: 048
     Dates: start: 20101018, end: 20110627
  9. KETOPROFEN [Concomitant]
     Dosage: DOSE UNKNOWN
     Route: 065

REACTIONS (5)
  - NAUSEA [None]
  - ARTHRALGIA [None]
  - HAEMORRHAGE [None]
  - DIZZINESS [None]
  - OROPHARYNGEAL DISCOMFORT [None]
